FAERS Safety Report 16467458 (Version 3)
Quarter: 2019Q3

REPORT INFORMATION
  Report Type: Spontaneous
  Country: US (occurrence: US)
  Receive Date: 20190624
  Receipt Date: 20190829
  Transmission Date: 20191004
  Serious: Yes (Death, Hospitalization, Other)
  Sender: FDA-Public Use
  Company Number: US-INSMED, INC.-US-INS-19-01969

PATIENT
  Age: 49 Year
  Sex: Male

DRUGS (3)
  1. LAMIRA NEBULIZER SYSTEM [Suspect]
     Active Substance: DEVICE
  2. ARIKAYCE [Suspect]
     Active Substance: AMIKACIN
     Indication: LUNG TRANSPLANT
  3. ARIKAYCE [Suspect]
     Active Substance: AMIKACIN
     Indication: BRONCHIECTASIS
     Route: 055
     Dates: start: 20190412, end: 2019

REACTIONS (3)
  - Death [Fatal]
  - Hyperammonaemia [Unknown]
  - Off label use [Unknown]

NARRATIVE: CASE EVENT DATE: 2019
